FAERS Safety Report 23080137 (Version 1)
Quarter: 2023Q4

REPORT INFORMATION
  Report Type: Other
  Country: GB (occurrence: GB)
  Receive Date: 20231018
  Receipt Date: 20231018
  Transmission Date: 20240109
  Serious: Yes (Hospitalization)
  Sender: FDA-Public Use
  Company Number: None

PATIENT
  Sex: Male

DRUGS (8)
  1. MEMANTINE [Suspect]
     Active Substance: MEMANTINE
     Indication: Product used for unknown indication
     Dosage: UNK, TABLETS
     Route: 065
     Dates: start: 20230918
  2. MEMANTINE [Suspect]
     Active Substance: MEMANTINE
     Dosage: 15 MILLIGRAM, QD, TITRATED UP TO 15MG DAILY
     Route: 065
  3. MEMANTINE [Suspect]
     Active Substance: MEMANTINE
     Dosage: 20 MILLIGRAM, QD, TITRATED UP TO 20MG DAILY
     Route: 065
     Dates: end: 20231003
  4. ALENDRONIC ACID [Concomitant]
     Active Substance: ALENDRONIC ACID
     Indication: Product used for unknown indication
     Dosage: UNK
     Route: 065
  5. APIXABAN [Concomitant]
     Active Substance: APIXABAN
     Indication: Product used for unknown indication
     Dosage: UNK
     Route: 065
  6. BISOPROLOL [Concomitant]
     Active Substance: BISOPROLOL\BISOPROLOL FUMARATE
     Indication: Product used for unknown indication
     Dosage: UNK
     Route: 065
  7. DONEPEZIL [Concomitant]
     Active Substance: DONEPEZIL
     Indication: Product used for unknown indication
     Dosage: UNK
     Route: 065
  8. SERTRALINE [Concomitant]
     Active Substance: SERTRALINE HYDROCHLORIDE
     Indication: Product used for unknown indication
     Dosage: UNK
     Route: 065

REACTIONS (4)
  - Contusion [Not Recovered/Not Resolved]
  - Swelling face [Not Recovered/Not Resolved]
  - Hypotension [Unknown]
  - Peripheral swelling [Unknown]
